FAERS Safety Report 4498610-9 (Version None)
Quarter: 2004Q4

REPORT INFORMATION
  Report Type: 
  Country: None (occurrence: None)
  Receive Date: 20041108
  Receipt Date: 20041027
  Transmission Date: 20050328
  Serious: No
  Sender: FDA-Public Use
  Company Number: APP200400816

PATIENT
  Age: 69 Year
  Sex: Male

DRUGS (1)
  1. PROTAMINE SULFATE [Suspect]
     Dosage: ONE, INTRAVENOUS
     Route: 042
     Dates: start: 20041027, end: 20041027

REACTIONS (2)
  - PULMONARY HYPERTENSION [None]
  - RESPIRATORY ACIDOSIS [None]
